FAERS Safety Report 15134570 (Version 1)
Quarter: 2018Q3

REPORT INFORMATION
  Report Type: Spontaneous
  Country: IT (occurrence: IT)
  Receive Date: 20180712
  Receipt Date: 20180712
  Transmission Date: 20181010
  Serious: Yes (Hospitalization)
  Sender: FDA-Public Use
  Company Number: IT-PFIZER INC-2018276637

PATIENT
  Age: 37 Year
  Sex: Female

DRUGS (2)
  1. ALCOHOL. [Suspect]
     Active Substance: ALCOHOL
     Dosage: UNK
  2. TAVOR (LORAZEPAM) [Suspect]
     Active Substance: LORAZEPAM
     Dosage: 30 MG, TOTAL
     Route: 048

REACTIONS (3)
  - Sopor [Unknown]
  - Overdose [Unknown]
  - Confusional state [Unknown]

NARRATIVE: CASE EVENT DATE: 20180405
